FAERS Safety Report 7354928-3 (Version None)
Quarter: 2011Q1

REPORT INFORMATION
  Report Type: 
  Country: None (occurrence: None)
  Receive Date: 20110301
  Receipt Date: 20110222
  Transmission Date: 20110831
  Serious: Yes (Death)
  Sender: FDA-Public Use
  Company Number: THYM-1000874

PATIENT
  Age: 54 Year
  Sex: Male
  Weight: 60 kg

DRUGS (15)
  1. THYMOGLOBULIN [Suspect]
     Indication: BONE MARROW TRANSPLANT
     Dosage: 2.5 , 147.5 MG, QD, INTRAVENOUS
     Route: 042
     Dates: start: 20081210, end: 20081210
  2. MELPHALAN HYDROCHLORIDE [Concomitant]
  3. CLINDAMYCIN PHOSPHATE [Concomitant]
  4. ACICLOVIR (ACICLOVIR SODIUM) [Concomitant]
  5. MICAFUNGIN SODIUM (MICAFUNGIN SODIUM) [Concomitant]
  6. METHOTREXATE [Concomitant]
  7. CIPROFLOXACIN HYDROCHLORIDE [Concomitant]
  8. VANCOMYCIN HYDROCHLORIDE [Concomitant]
  9. CEFTAZIDIME [Concomitant]
  10. SULFAMETHOPRIM (SULFAMETHOXAZOLE, TRIMETHOPRIM) [Concomitant]
  11. METHYLPREDNISOLONE SODIUIM SUCCINATE (METHYLPRENISOLONE SODIUM SUCCINA [Concomitant]
  12. FLUDARABINE PHOSPHATE [Concomitant]
  13. TACROLIMUS [Concomitant]
  14. CEFEPINE  HYDROCHLORIDE (CEFEPIME HYDROCHLORIDE) [Concomitant]
  15. MYCOPHENOLATE MOFETIL [Concomitant]

REACTIONS (11)
  - ENGRAFT FAILURE [None]
  - FEBRILE NEUTROPENIA [None]
  - CARDIAC FAILURE [None]
  - TRICHOSPORON INFECTION [None]
  - ACUTE MYELOID LEUKAEMIA [None]
  - NEOPLASM MALIGNANT [None]
  - MULTI-ORGAN FAILURE [None]
  - DISEASE PROGRESSION [None]
  - DEPRESSED LEVEL OF CONSCIOUSNESS [None]
  - IMMUNE SYSTEM DISORDER [None]
  - RENAL FAILURE [None]
